FAERS Safety Report 14157979 (Version 5)
Quarter: 2019Q1

REPORT INFORMATION
  Report Type: Spontaneous
  Country: CN (occurrence: CN)
  Receive Date: 20171105
  Receipt Date: 20190215
  Transmission Date: 20190417
  Serious: Yes (Hospitalization, Other)
  Sender: FDA-Public Use
  Company Number: CN-009507513-1710CHN013418

PATIENT
  Age: 59 Year
  Sex: Male

DRUGS (2)
  1. RIBAVIRIN. [Suspect]
     Active Substance: RIBAVIRIN
     Indication: HEPATITIS C
     Dosage: 300 MG, TID
     Route: 048
     Dates: start: 201209
  2. INTERFERON ALFA-2B [Suspect]
     Active Substance: INTERFERON ALFA-2B
     Indication: HEPATITIS C
     Dosage: 3 X 10^6 UNITS, THREE TIMES WEEKLY
     Route: 058
     Dates: start: 201209

REACTIONS (1)
  - Vogt-Koyanagi-Harada syndrome [Recovered/Resolved]

NARRATIVE: CASE EVENT DATE: 201301
